FAERS Safety Report 22650311 (Version 1)
Quarter: 2023Q2

REPORT INFORMATION
  Report Type: Spontaneous
  Country: FR (occurrence: FR)
  Receive Date: 20230628
  Receipt Date: 20230628
  Transmission Date: 20230721
  Serious: Yes (Other)
  Sender: FDA-Public Use
  Company Number: None

PATIENT
  Age: 51 Year
  Sex: Male

DRUGS (2)
  1. CYRAMZA [Suspect]
     Active Substance: RAMUCIRUMAB
     Indication: Duodenal neoplasm
     Dosage: 695 MG, SINGLE
     Route: 042
     Dates: start: 20230414, end: 20230414
  2. PACLITAXEL [Concomitant]
     Active Substance: PACLITAXEL
     Indication: Duodenal neoplasm
     Dosage: 160 MG, SINGLE
     Route: 042
     Dates: start: 20230414, end: 20230414

REACTIONS (1)
  - Aphthous ulcer [Recovering/Resolving]

NARRATIVE: CASE EVENT DATE: 20230421
